FAERS Safety Report 7512115-X (Version None)
Quarter: 2011Q2

REPORT INFORMATION
  Report Type: 
  Country: None (occurrence: None)
  Receive Date: 20110520
  Receipt Date: 20100629
  Transmission Date: 20111010
  Serious: Yes (Hospitalization)
  Sender: FDA-Public Use
  Company Number: 2010SP036372

PATIENT
  Age: 64 Year
  Sex: Male

DRUGS (6)
  1. CLOBETASOL PROPIONATE [Suspect]
     Indication: GRAFT VERSUS HOST DISEASE
     Dosage: 3 DF TID, TOP
     Route: 061
     Dates: start: 20090101, end: 20100318
  2. ESCITALOPRAM [Concomitant]
  3. URBANYL [Concomitant]
  4. DIPROLENE [Suspect]
     Indication: GRAFT VERSUS HOST DISEASE
     Dosage: 1 DF, TIW, TOP
     Route: 061
     Dates: start: 20090101, end: 20100317
  5. ACETAMINOPHEN [Concomitant]
  6. BACTRIM [Concomitant]

REACTIONS (2)
  - TOXICITY TO VARIOUS AGENTS [None]
  - AMYOTROPHY [None]
